FAERS Safety Report 25443241 (Version 2)
Quarter: 2025Q4

REPORT INFORMATION
  Report Type: Spontaneous
  Country: CA (occurrence: CA)
  Receive Date: 20250617
  Receipt Date: 20251120
  Transmission Date: 20260118
  Serious: Yes (Other)
  Sender: Haleon PLC
  Company Number: CA-HALEON-2193659

PATIENT
  Age: 66 Year
  Sex: Male

DRUGS (45)
  1. EX-LAX REGULAR STRENGTH STIMULANT LAXATIVE [Suspect]
     Active Substance: SENNOSIDES
     Indication: Product used for unknown indication
  2. EX-LAX REGULAR STRENGTH [Suspect]
     Active Substance: SENNOSIDES
     Indication: Product used for unknown indication
     Dosage: DOSE FORM : NOT SPECIFIED
  3. EX-LAX REGULAR STRENGTH [Suspect]
     Active Substance: SENNOSIDES
     Dosage: PATIENT ROA; UNKNOWN AND DOSE FORM : NOT SPECIFIED
  4. AMOXICILLIN TRIHYDRATE [Suspect]
     Active Substance: AMOXICILLIN
     Indication: Product used for unknown indication
     Dosage: PATIENT ROA ; UNKNOWN
  5. CANDESARTAN [Suspect]
     Active Substance: CANDESARTAN
     Indication: Product used for unknown indication
  6. CIPROFLOXACIN LACTATE [Suspect]
     Active Substance: CIPROFLOXACIN LACTATE
     Indication: Product used for unknown indication
     Dosage: PATIENT ROA : UNKNOWN
  7. FILGRASTIM [Suspect]
     Active Substance: FILGRASTIM
     Indication: Product used for unknown indication
  8. INDOMETHACIN [Suspect]
     Active Substance: INDOMETHACIN
     Indication: Product used for unknown indication
     Dosage: DOSE FORM : UNSPECIFIED AND PATIENT ROA UNKNOWN
  9. INDOMETHACIN [Suspect]
     Active Substance: INDOMETHACIN
     Dosage: PATIENT ROA UNKNOWN
  10. METFORMIN [Suspect]
     Active Substance: METFORMIN HYDROCHLORIDE
     Indication: Product used for unknown indication
     Dosage: PATIENT ROA UNKNOWN
  11. ONDANSETRON [Suspect]
     Active Substance: ONDANSETRON
     Indication: Product used for unknown indication
     Dosage: DOSE FORM : UNSPECIFIED AND PATIENT ROA UNKNOWN
  12. PREDNISONE [Suspect]
     Active Substance: PREDNISONE
     Indication: Product used for unknown indication
     Dosage: PATIENT RAO : UNKNOWN
  13. PREDNISONE [Suspect]
     Active Substance: PREDNISONE
     Dosage: PATIENT RAO : UNKNOWN AND DOSE FORM: UNKNOWN
  14. PROCHLORPERAZINE [Suspect]
     Active Substance: PROCHLORPERAZINE
     Indication: Product used for unknown indication
     Dosage: PATIENT ROA; UNKNOWN AND DOSE FORM : NOT SPECIFIED
  15. PROCHLORPERAZINE [Suspect]
     Active Substance: PROCHLORPERAZINE
     Dosage: PATIENT ROA; UNKNOWN
  16. TRESIBA [Suspect]
     Active Substance: INSULIN DEGLUDEC
     Indication: Product used for unknown indication
     Dosage: PATIENT ROA; UNKNOWN
  17. TRESIBA [Suspect]
     Active Substance: INSULIN DEGLUDEC
     Dosage: PATIENT ROA; UNKNOWN AND DOSE FORM : NOT SPECIFIED
  18. ASPIRIN [Suspect]
     Active Substance: ASPIRIN
     Indication: Product used for unknown indication
     Dosage: DOSE FORM: NOT SPECIFIED, AND PATIENT ROA : UNKNONW
  19. AMLODIPINE BESYLATE [Suspect]
     Active Substance: AMLODIPINE BESYLATE
     Indication: Product used for unknown indication
     Dosage: PATIENT ROA: UNKNOWN
  20. DIMENHYDRINATE [Suspect]
     Active Substance: DIMENHYDRINATE
     Indication: Product used for unknown indication
     Dosage: DOSE FROM: NOT SPECIFIED, PATIENT ROA : UNKNOWN
  21. DIMENHYDRINATE [Suspect]
     Active Substance: DIMENHYDRINATE
     Dosage: DOSE FROM: NOT SPECIFIED
  22. VALACYCLOVIR HYDROCHLORIDE [Suspect]
     Active Substance: VALACYCLOVIR HYDROCHLORIDE
     Indication: Product used for unknown indication
  23. OLANZAPINE [Suspect]
     Active Substance: OLANZAPINE
     Indication: Product used for unknown indication
     Dosage: PATIENT RAO : UNKNOWN
  24. OLANZAPINE [Suspect]
     Active Substance: OLANZAPINE
     Dosage: PATIENTROA : UNKNOWN AND DOSE FORM: NOT SPEICID
  25. PANTOPRAZOLE [Suspect]
     Active Substance: PANTOPRAZOLE
     Indication: Product used for unknown indication
     Dosage: PATIENT ROA : UNKNOWN
  26. POTASSIUM CHLORIDE [Suspect]
     Active Substance: POTASSIUM CHLORIDE
     Indication: Product used for unknown indication
     Dosage: PATINET ROA : UNKNOWN, DOSE FORM : NOT SPECIFIED.
  27. POTASSIUM CHLORIDE [Suspect]
     Active Substance: POTASSIUM CHLORIDE
     Dosage: DOSE FORM : NOT SPECIFIED.
  28. ROSUVASTATIN CALCIUM [Suspect]
     Active Substance: ROSUVASTATIN CALCIUM
     Indication: Product used for unknown indication
     Dosage: PATIENT ROA: UNKNOWN
  29. MAGNESIUM OXIDE [Suspect]
     Active Substance: MAGNESIUM OXIDE
     Indication: Product used for unknown indication
     Dosage: DOSE FORM : UNSPECIFIED AND PATIENT ROA UNKNOWN
  30. ACETAMINOPHEN [Suspect]
     Active Substance: ACETAMINOPHEN
     Indication: Product used for unknown indication
     Dosage: DOSE FORM : UNSPECIFIED AND PATIENT ROA UNKNOWN
  31. PANTOPRAZOLE SODIUM ANHYDROUS [Suspect]
     Active Substance: PANTOPRAZOLE SODIUM ANHYDROUS
     Indication: Product used for unknown indication
     Dosage: DOSE FORM : UNSPECIFIED AND PATIENT ROA UNKNOWN
  32. VALACYCLOVIR HYDROCHLORIDE [Suspect]
     Active Substance: VALACYCLOVIR HYDROCHLORIDE
     Indication: Product used for unknown indication
     Dosage: PATIENT ROA : UNKNOWN
  33. ROSUVASTATIN [Suspect]
     Active Substance: ROSUVASTATIN
     Indication: Product used for unknown indication
     Dosage: PATIENT ROA : UNKNOWN
  34. AMLODIPINE [Suspect]
     Active Substance: AMLODIPINE BESYLATE
     Indication: Product used for unknown indication
     Dosage: PATIENT ROA : UNKNOWN
  35. AMOXICILLIN [Suspect]
     Active Substance: AMOXICILLIN
     Indication: Product used for unknown indication
     Dosage: PATIENT ROA : UNKNOWN
  36. LIDOCAINE [Suspect]
     Active Substance: LIDOCAINE
     Indication: Product used for unknown indication
     Dosage: DOSE FORM : OINTMENT TOPICAL AND PATIENT ROA UNKNOWN
  37. ACETAMINOPHEN [Suspect]
     Active Substance: ACETAMINOPHEN
     Indication: Product used for unknown indication
     Dosage: PATIENT ROA; UNNOWN DOSAGE FORM AS TABLET (EXTENDED RELEASE)
  38. CANDESARTAN [Suspect]
     Active Substance: CANDESARTAN
     Indication: Product used for unknown indication
     Dosage: PATIENT ROA : UNKNOWN
  39. CIPROFLOXACIN [Suspect]
     Active Substance: CIPROFLOXACIN
     Indication: Product used for unknown indication
     Dosage: DOSE FORM : NOT SPECIFIED AND PATIENT ROA : UNKNOWN
  40. ACETAMINOPHEN\CAFFEINE\CODEINE [Suspect]
     Active Substance: ACETAMINOPHEN\CAFFEINE\CODEINE
     Indication: Product used for unknown indication
     Dosage: DOSE FORM: NOT SPECIFIED AND PATIENT ROA : UNKNOWN
  41. FLONASE ALLERGY RELIEF [Suspect]
     Active Substance: FLUTICASONE PROPIONATE
     Indication: Product used for unknown indication
     Dosage: DOSE FORM: NOT SPECIFIED, AND PATIENT ROA : UNKNOWN
  42. FLONASE ALLERGY RELIEF [Suspect]
     Active Substance: FLUTICASONE PROPIONATE
     Dosage: PATIENT ROA : UNKNOWN
  43. CODEINE [Suspect]
     Active Substance: CODEINE
     Indication: Product used for unknown indication
     Dosage: DOSE FROM: NOT SPECIFIED, PATIENT ROA : UNKNOWN
  44. CRESTOR [Suspect]
     Active Substance: ROSUVASTATIN CALCIUM
     Indication: Product used for unknown indication
  45. METFORMIN [Suspect]
     Active Substance: METFORMIN HYDROCHLORIDE
     Indication: Product used for unknown indication

REACTIONS (1)
  - Febrile neutropenia [Unknown]
